FAERS Safety Report 5572746-3 (Version None)
Quarter: 2007Q4

REPORT INFORMATION
  Report Type: 
  Country: None (occurrence: None)
  Receive Date: 20071130
  Receipt Date: 20070511
  Transmission Date: 20080405
  Serious: Yes (Other)
  Sender: FDA-Public Use
  Company Number: WAES 0605USA02763

PATIENT
  Age: 58 Year
  Sex: Female
  Weight: 70.3075 kg

DRUGS (4)
  1. FOSAMAX [Suspect]
     Indication: OSTEOPENIA
     Dosage: 35 MG WKY PO
     Route: 048
     Dates: start: 20051201, end: 20060511
  2. EFFEXOR [Concomitant]
  3. SYNTHROID [Concomitant]
  4. VYTORIN [Concomitant]

REACTIONS (8)
  - GINGIVAL INFECTION [None]
  - GINGIVITIS [None]
  - LYMPHADENOPATHY [None]
  - ORAL DISORDER [None]
  - OSTEONECROSIS [None]
  - PAIN IN JAW [None]
  - PHOTOSENSITIVITY REACTION [None]
  - RASH PRURITIC [None]
